FAERS Safety Report 25078622 (Version 1)
Quarter: 2025Q1

REPORT INFORMATION
  Report Type: Spontaneous
  Country: US (occurrence: US)
  Receive Date: 20250314
  Receipt Date: 20250314
  Transmission Date: 20250408
  Serious: No
  Sender: SANOFI AVENTIS
  Company Number: US-SA-2025SA074873

PATIENT
  Sex: Female

DRUGS (8)
  1. DUPIXENT [Suspect]
     Active Substance: DUPILUMAB
     Indication: Essential hypertension
  2. AMLODIPINE [Concomitant]
     Active Substance: AMLODIPINE BESYLATE
  3. CLOBETASOL PROPIONATE [Concomitant]
     Active Substance: CLOBETASOL PROPIONATE
  4. ESCITALOPRAM [Concomitant]
     Active Substance: ESCITALOPRAM OXALATE
  5. JARDIANCE [Concomitant]
     Active Substance: EMPAGLIFLOZIN
  6. LABETALOL [Concomitant]
     Active Substance: LABETALOL
  7. LATANOPROST [Concomitant]
     Active Substance: LATANOPROST
  8. PIMECROLIMUS [Concomitant]
     Active Substance: PIMECROLIMUS

REACTIONS (2)
  - Ill-defined disorder [Unknown]
  - Product use in unapproved indication [Unknown]
